FAERS Safety Report 21042176 (Version 1)
Quarter: 2022Q3

REPORT INFORMATION
  Report Type: Spontaneous
  Country: BR (occurrence: BR)
  Receive Date: 20220705
  Receipt Date: 20220705
  Transmission Date: 20221027
  Serious: Yes (Other)
  Sender: FDA-Public Use
  Company Number: BR-TAKEDA-2022TUS044577

PATIENT
  Sex: Female
  Weight: 92 kg

DRUGS (5)
  1. AMITIZA [Suspect]
     Active Substance: LUBIPROSTONE
     Indication: Crohn^s disease
     Dosage: 24 MICROGRAM, BID
     Route: 065
  2. MESALAMINE [Suspect]
     Active Substance: MESALAMINE
     Indication: Crohn^s disease
     Dosage: UNK UNK, QD
     Route: 065
  3. METHOTREXATE [Concomitant]
     Active Substance: METHOTREXATE
     Dosage: UNK
     Route: 065
  4. FOLIC ACID [Concomitant]
     Active Substance: FOLIC ACID
     Dosage: UNK UNK, QD
     Route: 065
  5. CHLOROQUINE [Concomitant]
     Active Substance: CHLOROQUINE
     Dosage: UNK UNK, QD
     Route: 065

REACTIONS (9)
  - Anal fissure [Unknown]
  - Off label use [Unknown]
  - Constipation [Unknown]
  - Adverse event [Unknown]
  - Adverse drug reaction [Unknown]
  - Diarrhoea [Unknown]
  - Vomiting [Unknown]
  - Dyspnoea [Unknown]
  - Rheumatic disorder [Unknown]
